APPROVED DRUG PRODUCT: GLUCOPHAGE XR
Active Ingredient: METFORMIN HYDROCHLORIDE
Strength: 500MG **Federal Register determination that product was not discontinued or withdrawn for safety or effectiveness reasons**
Dosage Form/Route: TABLET, EXTENDED RELEASE;ORAL
Application: N021202 | Product #001
Applicant: EMD SERONO INC
Approved: Oct 13, 2000 | RLD: Yes | RS: No | Type: DISCN